FAERS Safety Report 5602186-X (Version None)
Quarter: 2008Q1

REPORT INFORMATION
  Report Type: 
  Country: None (occurrence: None)
  Receive Date: 20080125
  Receipt Date: 20080115
  Transmission Date: 20080703
  Serious: Yes (Other)
  Sender: FDA-Public Use
  Company Number: US-ASTRAZENECA-2006UW07870

PATIENT
  Age: 16220 Day
  Sex: Female
  Weight: 67.3 kg

DRUGS (1)
  1. SEROQUEL [Suspect]
     Indication: DEPRESSION
     Route: 048
     Dates: start: 20040830, end: 20050222

REACTIONS (8)
  - BLOOD CHOLESTEROL INCREASED [None]
  - BLOOD TRIGLYCERIDES INCREASED [None]
  - DIABETES MELLITUS [None]
  - HYPERPROLACTINAEMIA [None]
  - HYSTERECTOMY [None]
  - OBESITY [None]
  - TARDIVE DYSKINESIA [None]
  - THROMBOSIS [None]
